FAERS Safety Report 6532961-9 (Version None)
Quarter: 2010Q1

REPORT INFORMATION
  Report Type: 
  Country: None (occurrence: None)
  Receive Date: 20100111
  Receipt Date: 20100106
  Transmission Date: 20100710
  Serious: Yes (Hospitalization)
  Sender: FDA-Public Use
  Company Number: FR-BRISTOL-MYERS SQUIBB COMPANY-14923098

PATIENT
  Age: 49 Year
  Sex: Female
  Weight: 72 kg

DRUGS (4)
  1. IXABEPILONE [Suspect]
     Indication: BREAST CANCER
     Dosage: 2DOSES ON 23SEP AND 15DEC09.
     Dates: start: 20090923, end: 20091215
  2. CYCLOPHOSPHAMIDE [Suspect]
     Indication: BREAST CANCER
     Route: 042
     Dates: start: 20090917
  3. FLUOROURACIL [Suspect]
     Indication: BREAST CANCER
     Route: 042
     Dates: start: 20090917
  4. EPIRUBICIN [Suspect]
     Indication: BREAST CANCER
     Route: 042
     Dates: start: 20090917

REACTIONS (1)
  - PULMONARY EMBOLISM [None]
